FAERS Safety Report 15465427 (Version 1)
Quarter: 2018Q4

REPORT INFORMATION
  Report Type: Spontaneous
  Country: US (occurrence: US)
  Receive Date: 20181004
  Receipt Date: 20181004
  Transmission Date: 20190204
  Serious: Yes (Other)
  Sender: FDA-Public Use
  Company Number: US-BAYER-2018-183734

PATIENT
  Age: 28 Year
  Sex: Female

DRUGS (2)
  1. MIRENA [Suspect]
     Active Substance: LEVONORGESTREL
     Indication: PRECANCEROUS CELLS PRESENT
     Dosage: 20 MCG/24HR, CONT
     Route: 015
     Dates: start: 20171212, end: 20180226
  2. MIRENA [Suspect]
     Active Substance: LEVONORGESTREL
     Indication: PRECANCEROUS CELLS PRESENT
     Dosage: 20 MCG/24HR, CONT
     Route: 015
     Dates: start: 20180911, end: 20180928

REACTIONS (7)
  - Device expulsion [None]
  - Abdominal pain lower [Not Recovered/Not Resolved]
  - Product use in unapproved indication [None]
  - Genital haemorrhage [Not Recovered/Not Resolved]
  - Uterine contractions abnormal [Not Recovered/Not Resolved]
  - Procedural haemorrhage [Not Recovered/Not Resolved]
  - Device expulsion [None]

NARRATIVE: CASE EVENT DATE: 20180226
